FAERS Safety Report 9426677 (Version 1)
Quarter: 2013Q3

REPORT INFORMATION
  Report Type: Spontaneous
  Country: US (occurrence: US)
  Receive Date: 20130730
  Receipt Date: 20130730
  Transmission Date: 20140515
  Serious: No
  Sender: FDA-Public Use
  Company Number: US-SANOFI-AVENTIS-2013SA056633

PATIENT
  Age: 48 Year
  Sex: Female

DRUGS (4)
  1. AMBIEN CR [Suspect]
     Indication: INSOMNIA
     Dosage: DOSAGE: 7.5 MG TO 12.5 MG
     Route: 048
     Dates: end: 201211
  2. ZOLPIDEM TARTRATE [Suspect]
     Route: 048
     Dates: start: 201302
  3. LUNESTA [Concomitant]
  4. ROZEREM [Concomitant]

REACTIONS (2)
  - Fatigue [Not Recovered/Not Resolved]
  - Drug ineffective [Unknown]
